FAERS Safety Report 6441031-X (Version None)
Quarter: 2009Q4

REPORT INFORMATION
  Report Type: 
  Country: None (occurrence: None)
  Receive Date: 20091113
  Receipt Date: 20091113
  Transmission Date: 20100525
  Serious: Yes (Other)
  Sender: FDA-Public Use
  Company Number: None

PATIENT
  Age: 29 Year
  Sex: Female
  Weight: 106.5953 kg

DRUGS (4)
  1. TOPAMAX [Suspect]
     Indication: HEADACHE
     Dosage: 50 MG THREE TIMES BID P.O.
     Route: 048
     Dates: start: 20090401
  2. TOPAMAX [Suspect]
     Indication: MIGRAINE
     Dosage: 50 MG THREE TIMES BID P.O.
     Route: 048
     Dates: start: 20090401
  3. WELLBUTRIN SR [Concomitant]
  4. SEROQUEL [Concomitant]

REACTIONS (2)
  - DRUG INEFFECTIVE [None]
  - PRODUCT SUBSTITUTION ISSUE [None]
